FAERS Safety Report 5423139-0 (Version None)
Quarter: 2007Q3

REPORT INFORMATION
  Report Type: 
  Country: None (occurrence: None)
  Receive Date: 20070821
  Receipt Date: 20070806
  Transmission Date: 20080115
  Serious: No
  Sender: FDA-Public Use
  Company Number: JP-1163771

PATIENT
  Age: 72 Year
  Sex: Male

DRUGS (12)
  1. FLUORESCITE(FLUORESCEIN SODIUM) 10% INJECTION (BATCH#S: IMO709A) [Suspect]
     Indication: ANGIOGRAM RETINA
     Dosage: 5.0 ML IV OVER 15 SEC INTRAVENOUS
     Route: 042
     Dates: start: 20070726, end: 20070726
  2. TROPICAMIDE [Concomitant]
  3. PHENYLEPHRINE(PHENYLEPHRINE) [Concomitant]
  4. METOCLOPRAMIDE [Concomitant]
  5. KALLIDINOGENASE(KALLIDINOGENASE) [Concomitant]
  6. SOD.HYALURONATE(HYALURONATE SODIUM) [Concomitant]
  7. PIRENOXINE(PIRENOXINE) [Concomitant]
  8. LEVOCABASTINE HYDROCHLORIDE(LEVOCABASTINE HYDROCHLORIDE) [Concomitant]
  9. HERBAL PREPARATION (HERBAL PREPARATION) [Concomitant]
  10. KETOPROFEN [Concomitant]
  11. FELBINAC(FELBINAC) [Concomitant]
  12. UNOPROSTONE(UNOPROSTONE) [Concomitant]

REACTIONS (6)
  - AORTIC THROMBOSIS [None]
  - CEREBRAL ARTERY EMBOLISM [None]
  - HYPERHIDROSIS [None]
  - LOSS OF CONSCIOUSNESS [None]
  - SYNCOPE [None]
  - SYNCOPE VASOVAGAL [None]
